FAERS Safety Report 6508328-6 (Version None)
Quarter: 2009Q4

REPORT INFORMATION
  Report Type: 
  Country: None (occurrence: None)
  Receive Date: 20091221
  Receipt Date: 20081106
  Transmission Date: 20100525
  Serious: No
  Sender: FDA-Public Use
  Company Number: US-ASTRAZENECA-2008UW22542

PATIENT
  Age: 53 Year
  Sex: Female

DRUGS (3)
  1. CRESTOR [Suspect]
     Route: 048
     Dates: start: 20080601, end: 20080701
  2. ATACAND [Suspect]
     Route: 048
  3. COREG [Concomitant]
     Dates: start: 20060101

REACTIONS (1)
  - BACK PAIN [None]
